FAERS Safety Report 8629847 (Version 2)
Quarter: 2012Q4

REPORT INFORMATION
  Report Type: 
  Country: US (occurrence: US)
  Receive Date: 20120622
  Receipt Date: 20120917
  Transmission Date: 20130627
  Serious: Yes (Hospitalization, Other)
  Sender: FDA-Public Use
  Company Number: US-BAYER-2012-058913

PATIENT
  Age: 21 Year
  Sex: Female
  Weight: 91 kg

DRUGS (8)
  1. MULTIVITAMIN [Concomitant]
  2. ALBUTEROL [Concomitant]
     Indication: ASTHMA
     Dosage: UNK
     Dates: start: 1997
  3. SPRINTEC [Concomitant]
  4. YAZ [Suspect]
     Indication: ACNE
     Dosage: UNK
     Dates: start: 2007, end: 2010
  5. YAZ [Suspect]
     Indication: CONTRACEPTION
     Dosage: UNK
     Dates: start: 2003, end: 2010
  6. YASMIN [Suspect]
     Indication: ACNE
     Dosage: UNK
     Dates: start: 2007, end: 2010
  7. YASMIN [Suspect]
     Indication: CONTRACEPTION
  8. IBUPROFEN [Concomitant]

REACTIONS (10)
  - Deep vein thrombosis [None]
  - Haemorrhage [None]
  - Haemorrhoidal haemorrhage [None]
  - Contusion [None]
  - Pain [None]
  - Abasia [None]
  - Injury [None]
  - Depression [None]
  - Mental disorder [None]
  - Pain in extremity [None]
